FAERS Safety Report 6270376-1 (Version None)
Quarter: 2009Q3

REPORT INFORMATION
  Report Type: 
  Country: None (occurrence: None)
  Receive Date: 20090716
  Receipt Date: 20090710
  Transmission Date: 20100115
  Serious: Yes (Life-Threatening)
  Sender: FDA-Public Use
  Company Number: D0062172A

PATIENT
  Sex: Female

DRUGS (2)
  1. FORTUM [Suspect]
     Indication: FEBRILE NEUTROPENIA
     Route: 065
     Dates: start: 20090627, end: 20090702
  2. MORONAL [Concomitant]
     Dosage: 1ML THREE TIMES PER DAY
     Route: 048
     Dates: start: 20090301

REACTIONS (4)
  - ANAPHYLACTIC SHOCK [None]
  - CARDIO-RESPIRATORY ARREST [None]
  - OEDEMA MUCOSAL [None]
  - VOMITING [None]
